FAERS Safety Report 8603140-6 (Version None)
Quarter: 2012Q3

REPORT INFORMATION
  Report Type: 
  Country: None (occurrence: None)
  Receive Date: 20120817
  Receipt Date: 20120813
  Transmission Date: 20120928
  Serious: Yes (Death, Hospitalization)
  Sender: FDA-Public Use
  Company Number: PHHY2012IT069881

PATIENT
  Age: 51 Year
  Sex: Male

DRUGS (1)
  1. IBUPROFEN [Suspect]
     Dosage: 12 G, UNK
     Route: 048

REACTIONS (13)
  - RESPIRATORY DEPRESSION [None]
  - BRAIN OEDEMA [None]
  - RENAL VENOUS CONGESTION [None]
  - MYOCARDIAL OEDEMA [None]
  - HEPATIC CONGESTION [None]
  - METABOLIC ACIDOSIS [None]
  - COMA [None]
  - PULMONARY CONGESTION [None]
  - INTENTIONAL OVERDOSE [None]
  - PULMONARY OEDEMA [None]
  - HYPOTENSION [None]
  - COMPLETED SUICIDE [None]
  - CARDIOMYOPATHY [None]
